FAERS Safety Report 5337955-7 (Version None)
Quarter: 2007Q2

REPORT INFORMATION
  Report Type: 
  Country: None (occurrence: None)
  Receive Date: 20070530
  Receipt Date: 20070522
  Transmission Date: 20071010
  Serious: Yes (Other)
  Sender: FDA-Public Use
  Company Number: PHEH2007US07846

PATIENT
  Age: 66 Year
  Sex: Male
  Weight: 99.773 kg

DRUGS (5)
  1. TEKTURNA [Suspect]
     Indication: HYPERTENSION
     Dosage: 150 MG, QD
     Dates: start: 20070430, end: 20070501
  2. ATENOLOL [Concomitant]
  3. ALTACE [Concomitant]
  4. DILTIAZEM [Concomitant]
  5. GLUCOVANCE [Concomitant]

REACTIONS (2)
  - BLOOD GLUCOSE DECREASED [None]
  - GLYCOSYLATED HAEMOGLOBIN INCREASED [None]
